FAERS Safety Report 8800296 (Version 1)
Quarter: 2012Q4

REPORT INFORMATION
  Report Type: 
  Country: TR (occurrence: TR)
  Receive Date: 20120921
  Receipt Date: 20120921
  Transmission Date: 20130627
  Serious: Yes (Other)
  Sender: FDA-Public Use
  Company Number: PHHY2012TR080071

PATIENT
  Sex: Female

DRUGS (11)
  1. OCTREOTIDE [Suspect]
     Indication: HYPERINSULINISM
     Dosage: 20 ug/kg, per day
  2. OCTREOTIDE [Suspect]
     Dosage: 40 ug/kg, per day
  3. OCTREOTIDE [Suspect]
     Dosage: 15 ug/kg, per day
  4. OCTREOTIDE [Suspect]
     Dosage: 7 ug/kg, per day
  5. OCTREOTIDE [Suspect]
     Dosage: 7 ug/kg, per day
  6. OCTREOTIDE [Suspect]
     Dosage: 5 ug/kg, per day
  7. ESIDREX [Suspect]
     Indication: HYPERINSULINISM
     Dosage: 8 mg/kg, per day
  8. DIAZOXIDE [Suspect]
     Indication: HYPERINSULINISM
     Dosage: 10 mg/kg, per day
  9. DIAZOXIDE [Suspect]
     Dosage: 20 mg/kg, per day
  10. DIAZOXIDE [Suspect]
     Dosage: 8 mg/kg, per day
  11. PHENOBARBITAL [Concomitant]
     Indication: GRAND MAL CONVULSION
     Dosage: 5 mg/kg, per day

REACTIONS (3)
  - Growth retardation [Unknown]
  - Drug withdrawal convulsions [Unknown]
  - Cholestasis [Unknown]
